FAERS Safety Report 25710527 (Version 1)
Quarter: 2025Q3

REPORT INFORMATION
  Report Type: Spontaneous
  Country: US (occurrence: US)
  Receive Date: 20250821
  Receipt Date: 20250821
  Transmission Date: 20251020
  Serious: No
  Sender: Kenvue
  Company Number: US-KENVUE-20250710478

PATIENT
  Age: 78 Year
  Sex: Female

DRUGS (3)
  1. WOMENS ROGAINE UNSCENTED [Suspect]
     Active Substance: MINOXIDIL
     Indication: Alopecia
     Dosage: CAPFUL, ONCE A DAY
     Route: 061
     Dates: start: 20250611, end: 2025
  2. Unspecified treatments [Concomitant]
     Indication: Neoplasm malignant
     Route: 065
  3. Unspecified treatments [Concomitant]
     Indication: Leukaemia

REACTIONS (3)
  - Application site pruritus [Recovering/Resolving]
  - Application site rash [Recovering/Resolving]
  - Product use in unapproved indication [Unknown]

NARRATIVE: CASE EVENT DATE: 20250611
